FAERS Safety Report 8205254-1 (Version None)
Quarter: 2012Q1

REPORT INFORMATION
  Report Type: 
  Country: None (occurrence: None)
  Receive Date: 20120313
  Receipt Date: 20120306
  Transmission Date: 20120608
  Serious: Yes (Hospitalization, Other)
  Sender: FDA-Public Use
  Company Number: US-ROCHE-793548

PATIENT
  Sex: Male
  Weight: 68.1 kg

DRUGS (1)
  1. ACCUTANE [Suspect]
     Indication: ACNE
     Route: 065
     Dates: start: 19830101, end: 19840101

REACTIONS (11)
  - CONDITION AGGRAVATED [None]
  - HEADACHE [None]
  - MYALGIA [None]
  - INFLAMMATORY BOWEL DISEASE [None]
  - GASTROOESOPHAGEAL REFLUX DISEASE [None]
  - HIATUS HERNIA [None]
  - DIARRHOEA [None]
  - CROHN'S DISEASE [None]
  - SMALL INTESTINAL OBSTRUCTION [None]
  - COLONIC POLYP [None]
  - RESPIRATORY TRACT INFECTION [None]
